FAERS Safety Report 6911965-8 (Version None)
Quarter: 2010Q3

REPORT INFORMATION
  Report Type: 
  Country: None (occurrence: None)
  Receive Date: 20100806
  Receipt Date: 20071120
  Transmission Date: 20110219
  Serious: No
  Sender: FDA-Public Use
  Company Number: US-PFIZER INC-2007085648

PATIENT
  Sex: Female
  Weight: 52.62 kg

DRUGS (7)
  1. DETROL LA [Suspect]
     Indication: HYPERTONIC BLADDER
     Dates: start: 20071001, end: 20071027
  2. TRIAZOLAM [Suspect]
     Indication: SLEEP DISORDER
     Dates: start: 20060101
  3. PRAVACHOL [Suspect]
     Indication: BLOOD CHOLESTEROL INCREASED
     Dates: start: 20070901, end: 20071001
  4. ALL OTHER THERAPEUTIC PRODUCTS [Concomitant]
     Indication: GLAUCOMA
     Route: 047
  5. FISH OIL [Concomitant]
  6. DYAZIDE [Concomitant]
     Indication: HYPERTENSION
     Dosage: 37.5/25
  7. NIACIN [Concomitant]

REACTIONS (5)
  - FATIGUE [None]
  - FEELING ABNORMAL [None]
  - NAUSEA [None]
  - SLEEP DISORDER [None]
  - TERMINAL INSOMNIA [None]
